FAERS Safety Report 8325409-5 (Version None)
Quarter: 2012Q2

REPORT INFORMATION
  Report Type: 
  Country: None (occurrence: None)
  Receive Date: 20120427
  Receipt Date: 20120419
  Transmission Date: 20120825
  Serious: Yes (Other)
  Sender: FDA-Public Use
  Company Number: DSA_56235_2012

PATIENT
  Age: 56 Year
  Sex: Male

DRUGS (4)
  1. LOSARTAN POTASSIUM [Suspect]
     Indication: HYPERTENSION
     Dosage: (50 MG QD)
  2. PRAVASTATIN [Suspect]
     Indication: DYSLIPIDAEMIA
     Dosage: (20 MG QD)
  3. CPAP [Suspect]
     Indication: SLEEP APNOEA SYNDROME
     Dosage: (7 CM OVERNIGHT)
  4. DICLOFENAC (DICLOFENAC) 100 MG [Suspect]
     Indication: PAIN IN EXTREMITY
     Dosage: (100 MG BID)
     Dates: start: 20110501

REACTIONS (2)
  - HAEMOPTYSIS [None]
  - PULMONARY OEDEMA [None]
